FAERS Safety Report 23399605 (Version 1)
Quarter: 2024Q1

REPORT INFORMATION
  Report Type: Report from Study
  Country: US (occurrence: US)
  Receive Date: 20240113
  Receipt Date: 20240113
  Transmission Date: 20240410
  Serious: Yes (Other)
  Sender: FDA-Public Use
  Company Number: US-UCBSA-2023056593

PATIENT
  Sex: Male

DRUGS (1)
  1. CERTOLIZUMAB PEGOL [Suspect]
     Active Substance: CERTOLIZUMAB PEGOL
     Indication: Rheumatoid arthritis
     Dosage: MAINTENANCE DOSE 400 MILLIGRAM, MONTHLY (QM) (EVERY 4 WEEKS)
     Route: 058
     Dates: start: 20230810

REACTIONS (3)
  - Rheumatoid arthritis [Unknown]
  - Therapeutic response shortened [Unknown]
  - Therapeutic product effect decreased [Unknown]

NARRATIVE: CASE EVENT DATE: 20230101
